FAERS Safety Report 8188998-X (Version None)
Quarter: 2012Q1

REPORT INFORMATION
  Report Type: 
  Country: None (occurrence: None)
  Receive Date: 20120307
  Receipt Date: 20120227
  Transmission Date: 20120608
  Serious: Yes (Hospitalization, Other)
  Sender: FDA-Public Use
  Company Number: DE-BIOGENIDEC-2011BI047645

PATIENT
  Age: 50 Year
  Sex: Female
  Weight: 60 kg

DRUGS (6)
  1. TYSABRI [Suspect]
     Indication: MULTIPLE SCLEROSIS
     Route: 042
     Dates: start: 20071121, end: 20111115
  2. ENALAPRIL MALEATE [Concomitant]
  3. ESOMEPRAZOLE MAGNESIUM [Concomitant]
  4. CIPROFLOXACIN [Concomitant]
     Indication: URINARY TRACT INFECTION
  5. PREGABALIN [Concomitant]
     Indication: PAIN
  6. HYDROCHLOROTHIAZIDE [Concomitant]

REACTIONS (1)
  - B-CELL LYMPHOMA [None]
